FAERS Safety Report 7334836-4 (Version None)
Quarter: 2011Q1

REPORT INFORMATION
  Report Type: 
  Country: None (occurrence: None)
  Receive Date: 20110307
  Receipt Date: 20110224
  Transmission Date: 20110831
  Serious: Yes (Other)
  Sender: FDA-Public Use
  Company Number: PHHY2010US48548

PATIENT
  Sex: Female

DRUGS (15)
  1. ALEVE [Concomitant]
  2. BACLOFEN [Concomitant]
     Dosage: UNK
  3. AMPYRA [Concomitant]
     Dosage: UNK
  4. ZAPONEX [Concomitant]
     Dosage: UNK
  5. IBUPROFEN [Concomitant]
  6. ACETAMINOPHEN [Concomitant]
     Dosage: UNK
  7. ANTIBIOTICS [Concomitant]
     Dosage: UNK
  8. DEPAKOTE [Concomitant]
     Dosage: UNK
  9. ADVAIR DISKUS 100/50 [Concomitant]
     Dosage: UNK
  10. ALBUTEROL [Concomitant]
     Dosage: UNK
  11. EXTAVIA [Suspect]
     Indication: MULTIPLE SCLEROSIS
     Dosage: 0.25 MG, QD
     Route: 058
     Dates: start: 20100716
  12. TOPROL-XL [Concomitant]
     Dosage: UNK
  13. IMITREX [Concomitant]
     Dosage: UNK
  14. TRILEPTO [Concomitant]
     Dosage: UNK
  15. LYRICA [Concomitant]
     Dosage: UNK

REACTIONS (6)
  - MULTIPLE SCLEROSIS RELAPSE [None]
  - IRITIS [None]
  - HEADACHE [None]
  - PHOTOPHOBIA [None]
  - FATIGUE [None]
  - EYE PAIN [None]
